FAERS Safety Report 16703921 (Version 1)
Quarter: 2019Q3

REPORT INFORMATION
  Report Type: Spontaneous
  Country: ES (occurrence: ES)
  Receive Date: 20190814
  Receipt Date: 20190814
  Transmission Date: 20191004
  Serious: Yes (Other)
  Sender: FDA-Public Use
  Company Number: ES-MYLANLABS-2019M1075025

PATIENT
  Age: 76 Year
  Sex: Female

DRUGS (4)
  1. SIMVASTATIN. [Suspect]
     Active Substance: SIMVASTATIN
     Indication: HYPERLIPIDAEMIA
     Dosage: 20 MILLIGRAM, QD (1/24 H.)
     Route: 048
     Dates: start: 20180520
  2. NITROFURANTOINA [Suspect]
     Active Substance: NITROFURANTOIN
     Indication: CYSTITIS
     Dosage: 50 MILLIGRAM, QD (1/24 H)
     Route: 048
     Dates: start: 20180516, end: 20181010
  3. TORASEMIDE [Suspect]
     Active Substance: TORSEMIDE
     Indication: HYPERTENSION
     Dosage: 5 MILLIGRAM, QD (1/24)
     Route: 048
     Dates: start: 20180520
  4. CANDESARTAN. [Suspect]
     Active Substance: CANDESARTAN
     Indication: HYPERTENSION
     Dosage: 32 MILLIGRAM, QD (1/24)
     Route: 048
     Dates: start: 20180520

REACTIONS (2)
  - Pyrexia [Recovered/Resolved]
  - Oral discomfort [Unknown]

NARRATIVE: CASE EVENT DATE: 20180610
